FAERS Safety Report 8612328-X (Version None)
Quarter: 2012Q3

REPORT INFORMATION
  Report Type: 
  Country: None (occurrence: None)
  Receive Date: 20120810
  Receipt Date: 20120810
  Transmission Date: 20120928
  Serious: Yes (Disabling)
  Sender: FDA-Public Use
  Company Number: None

PATIENT
  Age: 33 Year
  Sex: Female
  Weight: 117.9352 kg

DRUGS (2)
  1. MIRENA [Suspect]
     Dates: start: 20090327, end: 20120417
  2. MIRENA [Suspect]
     Dates: start: 20040320, end: 20090327

REACTIONS (12)
  - PALPITATIONS [None]
  - ANXIETY [None]
  - MYALGIA [None]
  - GASTROOESOPHAGEAL REFLUX DISEASE [None]
  - FATIGUE [None]
  - SJOGREN'S SYNDROME [None]
  - HORMONE LEVEL ABNORMAL [None]
  - THYROID NEOPLASM [None]
  - LOSS OF EMPLOYMENT [None]
  - ARTHRALGIA [None]
  - FEELING ABNORMAL [None]
  - QUALITY OF LIFE DECREASED [None]
